FAERS Safety Report 8169891-5 (Version None)
Quarter: 2012Q1

REPORT INFORMATION
  Report Type: 
  Country: None (occurrence: None)
  Receive Date: 20120104
  Receipt Date: 20111020
  Transmission Date: 20120608
  Serious: No
  Sender: FDA-Public Use
  Company Number: 2011HGS-002668

PATIENT
  Age: 70 Year
  Sex: Female
  Weight: 54.4316 kg

DRUGS (15)
  1. ZETIA [Concomitant]
  2. EXFORGE (AMLODIPINE W/VALSARTAN) (AMLODIPINE, VALSARTAN) [Concomitant]
  3. FLEXERIL (CYCLOBENZAPRINE HYDROCHLORIDE) (CYCLOBENZAPRINE HYDROCHLORID [Concomitant]
  4. MULTIVITAMIN (MULTIVITAMINS) (ERGOCALCIFEROL, ASCORBIC ACID, FOLIC ACI [Concomitant]
  5. FIORICET W/ CODEINE (FIORICET W/ CODEINE) (CODEINE PHOSPHATE, CAFFEINE [Concomitant]
  6. FISH OIL (FISH OIL) (FISH OIL) [Concomitant]
  7. VITAMIN C (ASCORBIC ACID) (ASCORBIC ACID) [Concomitant]
  8. BENLYSTA [Suspect]
     Indication: SYSTEMIC LUPUS ERYTHEMATOSUS
     Dosage: 1 IN 28 D, INTRAVENOUS DRIP
     Route: 041
     Dates: start: 20110427
  9. PREDNISONE TAB [Suspect]
     Dosage: 1 IN 1 D, ORAL
     Route: 048
  10. PAIXL (PAROXETINE HYDROCHLORIDE) (PAROXETINE HYDROCHLORIDE) [Concomitant]
  11. CALCIUM WITH VITAMIN D (CALCIUM WITH VITAMIN D) (ERGOCALCIFEROL, CALCI [Concomitant]
  12. CARAFATE (SUCRALFATE) (SUCRALFATE) [Concomitant]
  13. PRILOSEC (OMEPRAZOLE) (OMEPRAZOLE) [Concomitant]
  14. CELLCEPT [Suspect]
     Dosage: 2500 MG, 1 IN 1 D, ORAL
     Route: 048
  15. NEXIUM [Concomitant]

REACTIONS (5)
  - GASTROOESOPHAGEAL REFLUX DISEASE [None]
  - OESOPHAGEAL ULCER HAEMORRHAGE [None]
  - OESOPHAGEAL PAIN [None]
  - GASTRITIS EROSIVE [None]
  - OESOPHAGITIS ULCERATIVE [None]
